FAERS Safety Report 5739367-0 (Version None)
Quarter: 2008Q2

REPORT INFORMATION
  Report Type: 
  Country: None (occurrence: None)
  Receive Date: 20080513
  Receipt Date: 20080429
  Transmission Date: 20081010
  Serious: No
  Sender: FDA-Public Use
  Company Number: US023310

PATIENT
  Age: 41 Year
  Sex: Female
  Weight: 61.2356 kg

DRUGS (5)
  1. FENTORA [Suspect]
     Indication: BACK PAIN
     Dosage: 400 UG BUCCAL
     Route: 002
     Dates: start: 20061012, end: 20070101
  2. FENTORA [Suspect]
     Indication: BACK PAIN
     Dosage: 400 UG BUCCAL
     Route: 002
     Dates: start: 20070701
  3. ACTIQ [Concomitant]
  4. KADIAN [Concomitant]
  5. AVINZA [Concomitant]

REACTIONS (1)
  - DRUG PRESCRIBING ERROR [None]
